FAERS Safety Report 9484787 (Version 2)
Quarter: 2013Q3

REPORT INFORMATION
  Report Type: Spontaneous
  Country: JP (occurrence: JP)
  Receive Date: 20130828
  Receipt Date: 20130828
  Transmission Date: 20140515
  Serious: Yes (Hospitalization)
  Sender: FDA-Public Use
  Company Number: JP-GLAXOSMITHKLINE-B0473585A

PATIENT
  Age: 76 Year
  Sex: Female

DRUGS (5)
  1. VALTREX [Suspect]
     Indication: HERPES ZOSTER
     Dosage: 1000MG THREE TIMES PER DAY
     Route: 048
     Dates: start: 20070526, end: 20070528
  2. MERCAZOLE [Concomitant]
     Route: 065
  3. ARASENA-A [Concomitant]
     Route: 061
  4. RINDERON [Concomitant]
     Route: 065
  5. SELOKEN [Concomitant]
     Route: 048

REACTIONS (7)
  - Renal failure acute [Recovered/Resolved]
  - Necrotising fasciitis [Unknown]
  - Cellulitis [Unknown]
  - Dysuria [Unknown]
  - Herpes zoster [Unknown]
  - Oliguria [Unknown]
  - Pyrexia [Unknown]
